FAERS Safety Report 25786059 (Version 6)
Quarter: 2025Q4

REPORT INFORMATION
  Report Type: Spontaneous
  Country: CO (occurrence: CO)
  Receive Date: 20250910
  Receipt Date: 20251202
  Transmission Date: 20260118
  Serious: No
  Sender: PFIZER
  Company Number: CO-PFIZER INC-PV202500108346

PATIENT
  Sex: Female

DRUGS (1)
  1. GENOTROPIN [Suspect]
     Active Substance: SOMATROPIN
     Dosage: 1 MG, DAILY
     Route: 058
     Dates: end: 20250904

REACTIONS (5)
  - Device leakage [Unknown]
  - Drug dose omission by device [Unknown]
  - Device difficult to use [Unknown]
  - Device mechanical issue [Unknown]
  - Device information output issue [Unknown]

NARRATIVE: CASE EVENT DATE: 20250904
